FAERS Safety Report 7078224-7 (Version None)
Quarter: 2010Q4

REPORT INFORMATION
  Report Type: 
  Country: None (occurrence: None)
  Receive Date: 20101101
  Receipt Date: 20101101
  Transmission Date: 20110411
  Serious: Yes (Life-Threatening, Hospitalization)
  Sender: FDA-Public Use
  Company Number: None

PATIENT
  Sex: Male
  Weight: 78.4723 kg

DRUGS (2)
  1. BICALUTAMIDE [Suspect]
     Indication: METASTASES TO BONE
     Dosage: 50MG TAB ONE DAILY BY MOUTH
     Route: 048
     Dates: start: 20100407, end: 20100422
  2. BICALUTAMIDE [Suspect]
     Indication: PROSTATIC SPECIFIC ANTIGEN INCREASED
     Dosage: 50MG TAB ONE DAILY BY MOUTH
     Route: 048
     Dates: start: 20100407, end: 20100422

REACTIONS (4)
  - ATRIAL FIBRILLATION [None]
  - HEART RATE INCREASED [None]
  - INFLUENZA [None]
  - PNEUMONIA [None]
